FAERS Safety Report 4653384-3 (Version None)
Quarter: 2005Q2

REPORT INFORMATION
  Report Type: 
  Country: None (occurrence: None)
  Receive Date: 20050503
  Receipt Date: 20050422
  Transmission Date: 20051028
  Serious: Yes (Hospitalization)
  Sender: FDA-Public Use
  Company Number: 200511071GDS

PATIENT
  Age: 46 Year
  Sex: Female

DRUGS (3)
  1. CIPROFLOXACIN [Suspect]
     Dosage: 5000 MG, TOTAL DAILY, ORAL
     Route: 048
     Dates: start: 20050401
  2. TRABXILIUM (CLORAZEPATE DIPOTASSIUM) [Suspect]
     Dosage: 400 MG, TOTAL DAILY, ORAL
     Route: 048
     Dates: start: 20050401
  3. SERACTIL (DEXIBUPROFEN) [Suspect]
     Dosage: 8000 MG, TOTAL DAILY, ORAL
     Route: 048
     Dates: start: 20050401

REACTIONS (8)
  - GLASGOW COMA SCALE ABNORMAL [None]
  - HYPERKALAEMIA [None]
  - INTENTIONAL MISUSE [None]
  - NEPHROPATHY TOXIC [None]
  - OVERDOSE [None]
  - RENAL FAILURE ACUTE [None]
  - SOMNOLENCE [None]
  - SUICIDE ATTEMPT [None]
